FAERS Safety Report 4519559-9 (Version None)
Quarter: 2004Q4

REPORT INFORMATION
  Report Type: 
  Country: None (occurrence: None)
  Receive Date: 20041129
  Receipt Date: 20041110
  Transmission Date: 20050328
  Serious: Yes (Other)
  Sender: FDA-Public Use
  Company Number: 601642

PATIENT
  Age: 1 Year
  Weight: 10 kg

DRUGS (1)
  1. RECOMBINATE [Suspect]
     Dates: start: 20000101

REACTIONS (1)
  - ANTI FACTOR VIII ANTIBODY POSITIVE [None]
